FAERS Safety Report 5580930-8 (Version None)
Quarter: 2007Q4

REPORT INFORMATION
  Report Type: 
  Country: None (occurrence: None)
  Receive Date: 20071227
  Receipt Date: 20071214
  Transmission Date: 20080405
  Serious: Yes (Life-Threatening, Hospitalization)
  Sender: FDA-Public Use
  Company Number: CLOF-10714

PATIENT
  Age: 20 Year
  Sex: Female
  Weight: 64.5 kg

DRUGS (16)
  1. CLOFARABINE (CLOFARABINE) [Suspect]
     Indication: ACUTE LYMPHOCYTIC LEUKAEMIA
     Dosage: 75 MG, QDX5, INTRAVENOUS; 70 MG, QD, INTRAVENOUS
     Route: 042
     Dates: start: 20071008, end: 20071012
  2. CLOFARABINE (CLOFARABINE) [Suspect]
     Indication: ACUTE LYMPHOCYTIC LEUKAEMIA
     Dosage: 75 MG, QDX5, INTRAVENOUS; 70 MG, QD, INTRAVENOUS
     Route: 042
     Dates: start: 20071121, end: 20071124
  3. ETOPOSIDE [Suspect]
     Indication: ACUTE LYMPHOCYTIC LEUKAEMIA
     Dosage: 190 MG, QDX5, INTRAVENOUS; 170 MG, QD, INTRAVENOUS
     Route: 042
     Dates: start: 20071008, end: 20071012
  4. ETOPOSIDE [Suspect]
     Indication: ACUTE LYMPHOCYTIC LEUKAEMIA
     Dosage: 190 MG, QDX5, INTRAVENOUS; 170 MG, QD, INTRAVENOUS
     Route: 042
     Dates: start: 20071121, end: 20071124
  5. CYCLOPHOSPHAMIDE [Suspect]
     Indication: ACUTE LYMPHOCYTIC LEUKAEMIA
     Dosage: 835 MG, QDX5, INTRAVENOUS; 750 MG, QD, INTRAVENOUS
     Route: 042
     Dates: start: 20071008, end: 20071012
  6. NOREPINEPHRINE BITARTRATE [Concomitant]
  7. EPINEPHRINE [Concomitant]
  8. VANCOMYCIN [Concomitant]
  9. ZOSYN [Concomitant]
  10. TOBRAMYCIN [Concomitant]
  11. DIFLUCAN [Concomitant]
  12. ACYCLOVIR [Concomitant]
  13. NEUPOGEN [Concomitant]
  14. ALLOPURINOL [Concomitant]
  15. ZOFRAN [Concomitant]
  16. CIPRO [Concomitant]

REACTIONS (34)
  - BACILLUS INFECTION [None]
  - BACK PAIN [None]
  - BLOOD BICARBONATE DECREASED [None]
  - BLOOD CHLORIDE INCREASED [None]
  - BLOOD CREATINE PHOSPHOKINASE [None]
  - BLOOD LACTATE DEHYDROGENASE INCREASED [None]
  - BLOOD MAGNESIUM DECREASED [None]
  - BLOOD PHOSPHORUS DECREASED [None]
  - BLOOD POTASSIUM DECREASED [None]
  - BLOOD SODIUM DECREASED [None]
  - CAECITIS [None]
  - CARBON DIOXIDE DECREASED [None]
  - DEHYDRATION [None]
  - DIARRHOEA [None]
  - FEBRILE NEUTROPENIA [None]
  - HAEMATOCRIT DECREASED [None]
  - HAEMOGLOBIN DECREASED [None]
  - HEART RATE INCREASED [None]
  - HEPATOMEGALY [None]
  - HYPOTENSION [None]
  - LACTOBACILLUS INFECTION [None]
  - PAIN [None]
  - PAIN IN EXTREMITY [None]
  - PANCREATITIS [None]
  - PELVIC FLUID COLLECTION [None]
  - PLATELET COUNT DECREASED [None]
  - PULMONARY MYCOSIS [None]
  - RED BLOOD CELL COUNT DECREASED [None]
  - SEPSIS [None]
  - STAPHYLOCOCCAL INFECTION [None]
  - STREPTOCOCCAL INFECTION [None]
  - URINARY TRACT INFECTION [None]
  - WEIGHT DECREASED [None]
  - WHITE BLOOD CELL COUNT DECREASED [None]
